FAERS Safety Report 15145052 (Version 4)
Quarter: 2019Q3

REPORT INFORMATION
  Report Type: Report from Study
  Country: US (occurrence: US)
  Receive Date: 20180713
  Receipt Date: 20190731
  Transmission Date: 20191004
  Serious: Yes (Hospitalization)
  Sender: FDA-Public Use
  Company Number: US-ACTELION-A-US2018-175169

PATIENT
  Age: 83 Year
  Sex: Male

DRUGS (25)
  1. ASPIRIN 81 [Concomitant]
     Active Substance: ASPIRIN
  2. CALCIFEROL [Concomitant]
  3. FLURA-DROPS [Concomitant]
     Active Substance: SODIUM FLUORIDE
  4. IPRATROPIUM [Concomitant]
     Active Substance: IPRATROPIUM
     Dosage: .03 %
     Dates: start: 20190329
  5. K TAB [Concomitant]
  6. METOPROLOL. [Concomitant]
     Active Substance: METOPROLOL
  7. ATORVASTATIN [Concomitant]
     Active Substance: ATORVASTATIN
     Dosage: 80 MG
     Dates: start: 20190311
  8. METOPROLOLTARTRAT [Concomitant]
     Dosage: 25 MG
     Dates: start: 20190505
  9. ESCITALOPRAM [Concomitant]
     Active Substance: ESCITALOPRAM OXALATE
  10. BETHANECHOL [Concomitant]
     Active Substance: BETHANECHOL
     Dosage: 25 MG
     Dates: start: 20190212
  11. FINASTERIDE. [Concomitant]
     Active Substance: FINASTERIDE
     Dosage: 5 MG
     Dates: start: 20190218
  12. SPIRONOLACTONE. [Concomitant]
     Active Substance: SPIRONOLACTONE
     Dosage: 50 MG
     Dates: start: 20190218
  13. TORSEMIDE. [Concomitant]
     Active Substance: TORSEMIDE
     Dosage: 100 UNK
     Dates: start: 20190122
  14. METOLAZONE. [Concomitant]
     Active Substance: METOLAZONE
  15. HUMALOG [Concomitant]
     Active Substance: INSULIN LISPRO
  16. ALLOPURINOL. [Concomitant]
     Active Substance: ALLOPURINOL
  17. LANTUS [Concomitant]
     Active Substance: INSULIN GLARGINE
     Dosage: 100 /ML
     Dates: start: 20190207
  18. VITAMIN D [Concomitant]
     Active Substance: VITAMIN D NOS
     Dosage: UNK
     Dates: start: 20190207
  19. OPSUMIT [Suspect]
     Active Substance: MACITENTAN
     Indication: PULMONARY ARTERIAL HYPERTENSION
     Dosage: 10 MG, QD
     Route: 048
     Dates: start: 20151109
  20. FUROSEMIDE. [Concomitant]
     Active Substance: FUROSEMIDE
  21. PROSCAR [Concomitant]
     Active Substance: FINASTERIDE
  22. CALCITRIOL. [Concomitant]
     Active Substance: CALCITRIOL
     Dosage: 0.25 MCG
     Dates: start: 20160826
  23. FLUDROCORTISON [Concomitant]
     Active Substance: FLUDROCORTISONE
     Dosage: 0.1 UNK
     Dates: start: 20190124
  24. MIDODRINE [Concomitant]
     Active Substance: MIDODRINE
     Dosage: 10 MG
     Dates: start: 20190105
  25. MONTELUKAST [Concomitant]
     Active Substance: MONTELUKAST SODIUM
     Dosage: 10 MG
     Dates: start: 20190329

REACTIONS (5)
  - Diabetes mellitus [Not Recovered/Not Resolved]
  - Cardiac disorder [Recovered/Resolved]
  - Stress [Recovered/Resolved]
  - Renal disorder [Not Recovered/Not Resolved]
  - Malaise [Recovered/Resolved]

NARRATIVE: CASE EVENT DATE: 20190711
